FAERS Safety Report 15704868 (Version 3)
Quarter: 2021Q1

REPORT INFORMATION
  Report Type: Spontaneous
  Country: US (occurrence: US)
  Receive Date: 20181210
  Receipt Date: 20210211
  Transmission Date: 20210419
  Serious: Yes (Other)
  Sender: FDA-Public Use
  Company Number: US-SA-2018SA331774

PATIENT
  Age: 48 Year
  Sex: Female

DRUGS (3)
  1. DOCETAXEL. [Suspect]
     Active Substance: DOCETAXEL
     Dosage: 147 MG, Q3W
     Route: 042
     Dates: start: 20140311, end: 20140311
  2. PARAPLATIN [Concomitant]
     Active Substance: CARBOPLATIN
     Dosage: 750 MG, UNK
  3. DOCETAXEL. [Suspect]
     Active Substance: DOCETAXEL
     Indication: BREAST CANCER FEMALE
     Dosage: 147 MG, Q3W
     Route: 042
     Dates: start: 20131211, end: 20131211

REACTIONS (2)
  - Psychological trauma [Unknown]
  - Alopecia [Recovering/Resolving]

NARRATIVE: CASE EVENT DATE: 20131211
